FAERS Safety Report 24769164 (Version 1)
Quarter: 2024Q4

REPORT INFORMATION
  Report Type: Spontaneous
  Country: US (occurrence: US)
  Receive Date: 20241224
  Receipt Date: 20241224
  Transmission Date: 20250115
  Serious: No
  Sender: UROGEN PHARMA
  Company Number: US-UROGEN PHARMA LTD.-2024-UGN-000164

PATIENT

DRUGS (5)
  1. JELMYTO [Suspect]
     Active Substance: MITOMYCIN
     Indication: Ureteric cancer
     Dosage: 6 MILLIGRAM PER MILLILITRE, ONCE A WEEK INSTILLATION
     Dates: start: 20241002, end: 20241002
  2. JELMYTO [Suspect]
     Active Substance: MITOMYCIN
     Dosage: 6 MILLIGRAM PER MILLILITRE, ONCE A WEEK INSTILLATION
     Dates: start: 20241009, end: 20241009
  3. JELMYTO [Suspect]
     Active Substance: MITOMYCIN
     Dosage: 6 MILLIGRAM PER MILLILITRE, ONCE A WEEK INSTILLATION
     Dates: start: 20241016, end: 20241016
  4. JELMYTO [Suspect]
     Active Substance: MITOMYCIN
     Dosage: 6 MILLIGRAM PER MILLILITRE, ONCE A WEEK INSTILLATION
     Dates: start: 20241023, end: 20241023
  5. JELMYTO [Suspect]
     Active Substance: MITOMYCIN
     Dosage: 6 MILLIGRAM PER MILLILITRE, ONCE A WEEK INSTILLATION
     Dates: start: 20241030, end: 20241030

REACTIONS (1)
  - Dysuria [Unknown]

NARRATIVE: CASE EVENT DATE: 20241001
